FAERS Safety Report 7290010-1 (Version None)
Quarter: 2011Q1

REPORT INFORMATION
  Report Type: 
  Country: None (occurrence: None)
  Receive Date: 20110209
  Receipt Date: 20110209
  Transmission Date: 20110831
  Serious: No
  Sender: FDA-Public Use
  Company Number: None

PATIENT
  Age: 51 Year
  Sex: Male
  Weight: 72.5755 kg

DRUGS (1)
  1. LOVASTATIN [Suspect]
     Indication: BLOOD CHOLESTEROL INCREASED
     Dosage: 40MG. 1 PER DAY PO
     Route: 048
     Dates: start: 20040126, end: 20090206

REACTIONS (6)
  - MENISCUS LESION [None]
  - PAIN [None]
  - GENERAL PHYSICAL HEALTH DETERIORATION [None]
  - CONSTIPATION [None]
  - ARTHRALGIA [None]
  - TENDON RUPTURE [None]
